FAERS Safety Report 4658860-5 (Version None)
Quarter: 2005Q2

REPORT INFORMATION
  Report Type: 
  Country: None (occurrence: None)
  Receive Date: 20050511
  Receipt Date: 20050502
  Transmission Date: 20051028
  Serious: Yes (Disabling)
  Sender: FDA-Public Use
  Company Number: US-MERCK-0505USA00304

PATIENT
  Age: 49 Year
  Sex: Male

DRUGS (3)
  1. VIOXX [Suspect]
     Indication: BACK PAIN
     Route: 048
     Dates: start: 20030901, end: 20040901
  2. PROLIXIN [Concomitant]
     Route: 065
  3. COGENTIN [Concomitant]
     Route: 048

REACTIONS (4)
  - BACK PAIN [None]
  - BONE PAIN [None]
  - MUSCULOSKELETAL DISCOMFORT [None]
  - SENSORY DISTURBANCE [None]
